FAERS Safety Report 9377422 (Version 1)
Quarter: 2013Q3

REPORT INFORMATION
  Report Type: Spontaneous
  Country: US (occurrence: US)
  Receive Date: 20130701
  Receipt Date: 20130701
  Transmission Date: 20140515
  Serious: No
  Sender: FDA-Public Use
  Company Number: US-009507513-1306USA005168

PATIENT
  Sex: Female

DRUGS (1)
  1. NUVARING [Suspect]
     Dosage: 1 RING/ 3 WEEKS
     Route: 067
     Dates: start: 20130311

REACTIONS (3)
  - Product quality issue [Unknown]
  - Medication error [Unknown]
  - No adverse event [Unknown]
